FAERS Safety Report 9969566 (Version 1)
Quarter: 2014Q1

REPORT INFORMATION
  Report Type: Spontaneous
  Country: ES (occurrence: ES)
  Receive Date: 20140306
  Receipt Date: 20140306
  Transmission Date: 20141002
  Serious: Yes (Hospitalization)
  Sender: FDA-Public Use
  Company Number: ES-BRISTOL-MYERS SQUIBB COMPANY-20294575

PATIENT
  Age: 41 Year
  Sex: Female

DRUGS (4)
  1. REYATAZ [Suspect]
     Indication: HIV INFECTION
     Route: 048
     Dates: start: 20100601, end: 20140204
  2. METHADONE [Suspect]
     Route: 048
     Dates: start: 20131001
  3. NORVIR [Suspect]
     Indication: ACQUIRED IMMUNODEFICIENCY SYNDROME
     Route: 048
     Dates: start: 20100601, end: 20140204
  4. TRUVADA [Suspect]
     Route: 048
     Dates: start: 20100601, end: 20140204

REACTIONS (3)
  - Adrenal insufficiency [Not Recovered/Not Resolved]
  - Neuropathy peripheral [Recovering/Resolving]
  - Hypopituitarism [Not Recovered/Not Resolved]
